FAERS Safety Report 6040098-0 (Version None)
Quarter: 2009Q1

REPORT INFORMATION
  Report Type: 
  Country: None (occurrence: None)
  Receive Date: 20090116
  Receipt Date: 20071212
  Transmission Date: 20090719
  Serious: Yes (Other)
  Sender: FDA-Public Use
  Company Number: US-BRISTOL-MYERS SQUIBB COMPANY-14012710

PATIENT
  Age: 54 Year
  Sex: Female

DRUGS (5)
  1. ABILIFY [Suspect]
     Route: 065
  2. LAMICTAL [Suspect]
     Indication: BIPOLAR DISORDER
     Dosage: GIVEN AS TABLETS.
     Route: 048
  3. CYMBALTA [Suspect]
     Route: 065
  4. XANAX [Suspect]
     Route: 065
  5. VISTARIL [Suspect]
     Route: 065

REACTIONS (3)
  - DRUG INEFFECTIVE [None]
  - HYPERHIDROSIS [None]
  - MANIA [None]
